FAERS Safety Report 21611487 (Version 1)
Quarter: 2022Q4

REPORT INFORMATION
  Report Type: Report from Study
  Country: US (occurrence: US)
  Receive Date: 20221117
  Receipt Date: 20221117
  Transmission Date: 20230113
  Serious: No
  Sender: FDA-Public Use
  Company Number: US-ABBVIE-4169787

PATIENT
  Age: 50 Year
  Sex: Female

DRUGS (1)
  1. RINVOQ [Suspect]
     Active Substance: UPADACITINIB
     Indication: Colitis ulcerative
     Dosage: 45 MG PO X 8 WEEKS
     Route: 048
     Dates: start: 202209

REACTIONS (8)
  - Hyperhidrosis [Unknown]
  - Pharyngitis streptococcal [Unknown]
  - Colitis ulcerative [Unknown]
  - Abdominal pain [Unknown]
  - Nausea [Unknown]
  - Dysphagia [Unknown]
  - Diarrhoea haemorrhagic [Unknown]
  - Chills [Unknown]

NARRATIVE: CASE EVENT DATE: 20211201
